FAERS Safety Report 5600128-4 (Version None)
Quarter: 2008Q1

REPORT INFORMATION
  Report Type: 
  Country: None (occurrence: None)
  Receive Date: 20080123
  Receipt Date: 20080121
  Transmission Date: 20080703
  Serious: Yes (Other)
  Sender: FDA-Public Use
  Company Number: B0504170A

PATIENT
  Age: 30 Year
  Sex: Male

DRUGS (1)
  1. VALTREX [Suspect]
     Indication: VARICELLA
     Route: 048
     Dates: start: 20080114

REACTIONS (1)
  - ERYTHEMA MULTIFORME [None]
